FAERS Safety Report 5968251-2 (Version None)
Quarter: 2008Q4

REPORT INFORMATION
  Report Type: 
  Country: None (occurrence: None)
  Receive Date: 20081122
  Receipt Date: 20081122
  Transmission Date: 20090506
  Serious: Yes (Hospitalization)
  Sender: FDA-Public Use
  Company Number: None

PATIENT
  Sex: Female
  Weight: 38.3 kg

DRUGS (2)
  1. CARBOPLATIN [Suspect]
     Dosage: 678 MG
     Dates: start: 20080501, end: 20080515
  2. TAXOL [Suspect]
     Dosage: 208 MG
     Dates: end: 20080515

REACTIONS (3)
  - DIARRHOEA [None]
  - HYPOGLYCAEMIA [None]
  - PANCYTOPENIA [None]
